FAERS Safety Report 7742962-0 (Version None)
Quarter: 2011Q3

REPORT INFORMATION
  Report Type: 
  Country: None (occurrence: None)
  Receive Date: 20110912
  Receipt Date: 20110906
  Transmission Date: 20111222
  Serious: Yes (Death, Other)
  Sender: FDA-Public Use
  Company Number: CN-PFIZER INC-2011202369

PATIENT
  Age: 60 Year
  Sex: Female

DRUGS (1)
  1. SUTENT [Suspect]
     Indication: GASTROINTESTINAL STROMAL TUMOUR
     Dosage: 37.5 MG, 1X/DAY
     Route: 048

REACTIONS (4)
  - GASTROINTESTINAL STROMAL TUMOUR [None]
  - BLINDNESS [None]
  - CARDIOPULMONARY FAILURE [None]
  - DISEASE PROGRESSION [None]
